FAERS Safety Report 18992562 (Version 1)
Quarter: 2021Q1

REPORT INFORMATION
  Report Type: Other
  Country: US (occurrence: US)
  Receive Date: 20210310
  Receipt Date: 20210310
  Transmission Date: 20210420
  Serious: Yes (Hospitalization)
  Sender: FDA-Public Use
  Company Number: US-B.BRAUN MEDICAL INC.-2107816

PATIENT
  Age: 37 Year
  Sex: Male

DRUGS (3)
  1. PROPOFOL. [Concomitant]
     Active Substance: PROPOFOL
  2. LIDOCAINE HYDROCHLORIDE AND DEXTROSE [Suspect]
     Active Substance: DEXTROSE\LIDOCAINE HYDROCHLORIDE
     Indication: HYPOTENSION
     Route: 050
  3. TRIAMCINOLONE [Concomitant]
     Active Substance: TRIAMCINOLONE

REACTIONS (2)
  - Seizure [Recovered/Resolved]
  - Cerebral venous thrombosis [None]
